FAERS Safety Report 10520405 (Version 1)
Quarter: 2014Q4

REPORT INFORMATION
  Report Type: Spontaneous
  Country: US (occurrence: US)
  Receive Date: 20141015
  Receipt Date: 20141015
  Transmission Date: 20150528
  Serious: No
  Sender: FDA-Public Use
  Company Number: US-GLAXOSMITHKLINE-US2014GSK002872

PATIENT
  Age: 85 Year
  Sex: Male

DRUGS (29)
  1. ASPIRIN. [Concomitant]
     Active Substance: ASPIRIN
  2. MULTIVITAMIN [Concomitant]
     Active Substance: VITAMINS
  3. INVOKANA [Concomitant]
     Active Substance: CANAGLIFLOZIN
  4. LUTEIN [Concomitant]
     Active Substance: LUTEIN
  5. COQ10 [Concomitant]
     Active Substance: UBIDECARENONE
  6. PANTOPRAZOLE [Concomitant]
     Active Substance: PANTOPRAZOLE SODIUM
  7. PLAVIX [Concomitant]
     Active Substance: CLOPIDOGREL BISULFATE
  8. NIFEDIPINE. [Concomitant]
     Active Substance: NIFEDIPINE
  9. ZOLOFT [Concomitant]
     Active Substance: SERTRALINE HYDROCHLORIDE
  10. BREO ELLIPTA [Suspect]
     Active Substance: FLUTICASONE FUROATE\VILANTEROL TRIFENATATE
     Indication: CHRONIC OBSTRUCTIVE PULMONARY DISEASE
     Dosage: 1 PUFF(S), QD
     Route: 055
     Dates: start: 20140916
  11. LEVOTHYROXINE [Concomitant]
     Active Substance: LEVOTHYROXINE
  12. VITAMIN D [Concomitant]
     Active Substance: CHOLECALCIFEROL
  13. RESVERATROL [Concomitant]
     Active Substance: RESVERATROL
  14. POTASSIUM [Concomitant]
     Active Substance: POTASSIUM
  15. PROBIOTIC [Concomitant]
     Active Substance: PROBIOTICS NOS
  16. FISH OIL [Concomitant]
     Active Substance: FISH OIL
  17. BREO ELLIPTA [Suspect]
     Active Substance: FLUTICASONE FUROATE\VILANTEROL TRIFENATATE
     Indication: DYSPNOEA
  18. METAMUCIL [Concomitant]
     Active Substance: PLANTAGO SEED
  19. LASIX [Concomitant]
     Active Substance: FUROSEMIDE
  20. VITAMIN B COMPLEX [Concomitant]
     Active Substance: CYANOCOBALAMIN\DEXPANTHENOL\NIACINAMIDE\PYRIDOXINE HYDROCHLORIDE\RIBOFLAVIN 5^-PHOSPHATE SODIUM\THIAMINE HYDROCHLORIDE\VITAMIN B COMPLEX
  21. IRON [Concomitant]
     Active Substance: IRON
  22. NIFEDIPINE XL [Concomitant]
     Active Substance: NIFEDIPINE
  23. WELCHOL [Concomitant]
     Active Substance: COLESEVELAM HYDROCHLORIDE
  24. VITAMIN B12 [Concomitant]
     Active Substance: CYANOCOBALAMIN
  25. STOOL SOFTENER [Concomitant]
     Active Substance: DOCUSATE CALCIUM
  26. RES-Q 1250 [Concomitant]
  27. METOPROLOL XL [Concomitant]
     Active Substance: METOPROLOL
  28. GLIMEPIRIDE. [Concomitant]
     Active Substance: GLIMEPIRIDE
  29. XARELTO [Concomitant]
     Active Substance: RIVAROXABAN

REACTIONS (3)
  - Micturition urgency [Not Recovered/Not Resolved]
  - Urine output decreased [Not Recovered/Not Resolved]
  - Therapeutic response unexpected [Not Recovered/Not Resolved]
